FAERS Safety Report 13021310 (Version 2)
Quarter: 2017Q1

REPORT INFORMATION
  Report Type: Spontaneous
  Country: US (occurrence: US)
  Receive Date: 20161213
  Receipt Date: 20170131
  Transmission Date: 20170428
  Serious: No
  Sender: FDA-Public Use
  Company Number: US-ASTRAZENECA-2016SF30785

PATIENT
  Age: 22926 Day
  Sex: Female
  Weight: 27.8 kg

DRUGS (3)
  1. RHINOCORT [Suspect]
     Active Substance: BUDESONIDE
     Indication: SINUS OPERATION
     Dosage: 2 SPRAYS PER NOSTRIL, ONCE A DAY
     Route: 045
     Dates: start: 201609
  2. CLARITIN [Concomitant]
     Active Substance: LORATADINE
     Indication: HYPERSENSITIVITY
     Route: 065
     Dates: start: 20161126
  3. RHINOCORT [Suspect]
     Active Substance: BUDESONIDE
     Indication: MULTIPLE ALLERGIES
     Dosage: 2 SPRAYS PER NOSTRIL, ONCE A DAY
     Route: 045
     Dates: start: 201609

REACTIONS (5)
  - Sinusitis [Recovered/Resolved]
  - Pharyngeal oedema [Recovered/Resolved]
  - Therapeutic response unexpected [Unknown]
  - Off label use [Not Recovered/Not Resolved]
  - Product use issue [Not Recovered/Not Resolved]

NARRATIVE: CASE EVENT DATE: 201609
